FAERS Safety Report 10552169 (Version 1)
Quarter: 2014Q4

REPORT INFORMATION
  Report Type: Spontaneous
  Country: US (occurrence: US)
  Receive Date: 20141029
  Receipt Date: 20141029
  Transmission Date: 20150529
  Serious: No
  Sender: FDA-Public Use
  Company Number: US-GLAXOSMITHKLINE-US2014GSK013586

PATIENT
  Age: 62 Year
  Sex: Female

DRUGS (1)
  1. TANZEUM [Suspect]
     Active Substance: ALBIGLUTIDE
     Indication: TYPE 2 DIABETES MELLITUS
     Dosage: 30 MG, WE
     Dates: start: 20141021

REACTIONS (5)
  - Palpitations [Unknown]
  - Application site pain [Recovered/Resolved]
  - Dyspnoea [Recovered/Resolved]
  - Bone pain [Unknown]
  - Back pain [Unknown]

NARRATIVE: CASE EVENT DATE: 20141021
